FAERS Safety Report 4611732-4 (Version None)
Quarter: 2005Q1

REPORT INFORMATION
  Report Type: 
  Country: None (occurrence: None)
  Receive Date: 20050317
  Receipt Date: 20050310
  Transmission Date: 20050727
  Serious: Yes (Other)
  Sender: FDA-Public Use
  Company Number: PHEH2005US03003

PATIENT
  Age: 61 Year
  Sex: Female

DRUGS (5)
  1. ZELNORM [Suspect]
     Indication: IRRITABLE BOWEL SYNDROME
     Dosage: 6 MG TWICE
     Route: 048
     Dates: start: 20050309, end: 20050310
  2. FIBRE [Concomitant]
  3. BENICAR [Concomitant]
     Dosage: 40 MG, QD
  4. TOPROL-XL [Concomitant]
     Dosage: 100 MG, QD
  5. VERELAN [Concomitant]
     Dosage: 300 MG, QD

REACTIONS (1)
  - DIARRHOEA HAEMORRHAGIC [None]
